FAERS Safety Report 4450962-1 (Version None)
Quarter: 2004Q3

REPORT INFORMATION
  Report Type: 
  Country: None (occurrence: None)
  Receive Date: 20040916
  Receipt Date: 20040210
  Transmission Date: 20050211
  Serious: Yes (Other)
  Sender: FDA-Public Use
  Company Number: US-BRISTOL-MYERS SQUIBB COMPANY-12509022

PATIENT
  Age: 28 Year
  Sex: Female

DRUGS (18)
  1. STADOL [Suspect]
     Indication: MIGRAINE
     Route: 030
     Dates: start: 19810101
  2. STADOL [Suspect]
     Indication: MIGRAINE
     Route: 045
     Dates: start: 19980101
  3. PHENERGAN HCL [Concomitant]
     Route: 030
  4. THORAZINE [Concomitant]
  5. OXYCODONE HCL + ACETAMINOPHEN [Concomitant]
  6. BUTALBITAL [Concomitant]
  7. NORTRIPTYLINE HCL [Concomitant]
  8. HYDROXYCHLOROQUINE SULFATE [Concomitant]
  9. VIOXX [Concomitant]
     Indication: ARTHRITIS
  10. PROPOXYPHENE HCL+ASA+CAFFEINE [Concomitant]
  11. PROPRANOLOL [Concomitant]
  12. INDOMETHACIN [Concomitant]
  13. SKELAXIN [Concomitant]
  14. CHLORZOXAZONE [Concomitant]
  15. HYDROCODONE + ACETAMINOPHEN [Concomitant]
  16. CHLORAZEPATE [Concomitant]
  17. PRILOSEC [Concomitant]
     Indication: GASTROOESOPHAGEAL REFLUX DISEASE
  18. MAXALT [Concomitant]

REACTIONS (1)
  - DEPENDENCE [None]
